FAERS Safety Report 12350749 (Version 7)
Quarter: 2016Q2

REPORT INFORMATION
  Report Type: Report from Study
  Country: US (occurrence: US)
  Receive Date: 20160510
  Receipt Date: 20160625
  Transmission Date: 20160815
  Serious: Yes (Hospitalization, Other)
  Sender: FDA-Public Use
  Company Number: US-GILEAD-2016-0212527

PATIENT
  Age: 15 Year
  Sex: Female
  Weight: 64 kg

DRUGS (8)
  1. ADCIRCA [Concomitant]
     Active Substance: TADALAFIL
     Indication: PULMONARY HYPERTENSION
     Dosage: 20 MG, UNK
     Dates: start: 201603
  2. VITAMIN D                          /00107901/ [Concomitant]
     Active Substance: ERGOCALCIFEROL
  3. LORATADINE. [Concomitant]
     Active Substance: LORATADINE
     Dosage: 10 MG, UNK
     Route: 048
  4. AMBRISENTAN [Suspect]
     Active Substance: AMBRISENTAN
     Indication: PULMONARY ARTERIAL HYPERTENSION
     Dosage: 5 MG, QD
     Route: 048
     Dates: start: 20160426
  5. REMODULIN [Suspect]
     Active Substance: TREPROSTINIL
     Indication: PULMONARY HYPERTENSION
     Dosage: 102 NG, UNK
     Route: 058
     Dates: start: 20140201
  6. AMBRISENTAN [Suspect]
     Active Substance: AMBRISENTAN
     Dosage: 10 MG, QD
     Route: 048
  7. WARFARIN [Concomitant]
     Active Substance: WARFARIN
  8. ASPIRIN                            /00002701/ [Concomitant]
     Active Substance: ASPIRIN
     Dosage: 81 MG, UNK
     Route: 048

REACTIONS (4)
  - Off label use [Not Recovered/Not Resolved]
  - Abdominal abscess [Recovered/Resolved]
  - Application site pain [Not Recovered/Not Resolved]
  - Application site cellulitis [Recovered/Resolved]

NARRATIVE: CASE EVENT DATE: 20160426
